FAERS Safety Report 19424222 (Version 1)
Quarter: 2021Q2

REPORT INFORMATION
  Report Type: Spontaneous
  Country: US (occurrence: US)
  Receive Date: 20210616
  Receipt Date: 20210616
  Transmission Date: 20210717
  Serious: No
  Sender: FDA-Public Use
  Company Number: US-SA-2021SA197579

PATIENT
  Sex: Male

DRUGS (1)
  1. DUPIXENT [Suspect]
     Active Substance: DUPILUMAB
     Indication: NASAL POLYPS
     Dosage: UNK
     Dates: start: 202101, end: 20210528

REACTIONS (4)
  - Skin exfoliation [Unknown]
  - Blepharospasm [Unknown]
  - Occupational exposure to sunlight [Unknown]
  - Rash macular [Unknown]

NARRATIVE: CASE EVENT DATE: 2021
